FAERS Safety Report 5407953-3 (Version None)
Quarter: 2007Q3

REPORT INFORMATION
  Report Type: 
  Country: None (occurrence: None)
  Receive Date: 20070807
  Receipt Date: 20070730
  Transmission Date: 20080115
  Serious: Yes (Hospitalization)
  Sender: FDA-Public Use
  Company Number: US-ABBOTT-07P-163-0376411-00

PATIENT
  Sex: Female
  Weight: 127 kg

DRUGS (4)
  1. HUMIRA [Suspect]
     Indication: RHEUMATOID ARTHRITIS
     Dosage: SYRINGE
     Route: 058
     Dates: start: 20051001, end: 20060101
  2. HUMIRA [Suspect]
     Dosage: SYRINGE
     Route: 058
     Dates: start: 20050701, end: 20051001
  3. HUMIRA [Suspect]
     Dosage: SYRINGE
     Route: 058
     Dates: start: 20060401, end: 20060801
  4. HUMIRA [Suspect]
     Dosage: PEN
     Route: 058
     Dates: start: 20060801

REACTIONS (6)
  - BRONCHITIS [None]
  - DEHYDRATION [None]
  - DRUG INEFFECTIVE [None]
  - HERPES ZOSTER [None]
  - INJECTION SITE IRRITATION [None]
  - SINUSITIS [None]
